FAERS Safety Report 21436776 (Version 2)
Quarter: 2023Q2

REPORT INFORMATION
  Report Type: Spontaneous
  Country: TR (occurrence: TR)
  Receive Date: 20221010
  Receipt Date: 20230614
  Transmission Date: 20230722
  Serious: Yes (Other)
  Sender: FDA-Public Use
  Company Number: TR-HALEON-TRCH2022GSK037679

PATIENT

DRUGS (5)
  1. DICLOFENAC SODIUM [Suspect]
     Active Substance: DICLOFENAC SODIUM
     Indication: Product used for unknown indication
     Dosage: 500 MG, QD, 1X1 (EXPOSURE PERIOD FROM 4W5D-5W0D)
     Route: 048
     Dates: start: 20201214, end: 20201220
  2. ORNIDAZOLE [Suspect]
     Active Substance: ORNIDAZOLE
     Indication: Product used for unknown indication
     Dosage: 1000 MG, QD (500 MG, 2X1) (EXPOSURE PERIOD FROM 3W5D-4W4D)
     Route: 048
     Dates: start: 20201221, end: 20201223
  3. FAVIPIRAVIR [Suspect]
     Active Substance: FAVIPIRAVIR
     Indication: COVID-19
     Dosage: 8000 MG (CUMULATIVE DOSE)
     Route: 048
     Dates: start: 20201001
  4. FAVIPIRAVIR [Suspect]
     Active Substance: FAVIPIRAVIR
     Dosage: 3200 MG (LOADING DOSE OF 2 X 1600 MG (WITHIN 24 H)
     Route: 048
  5. FAVIPIRAVIR [Suspect]
     Active Substance: FAVIPIRAVIR
     Dosage: 1200 MG (MAINTENANCE DOSE OF 2 X 600 MG (4 DAYS)
     Route: 048
     Dates: end: 20201005

REACTIONS (2)
  - Premature delivery [Unknown]
  - Maternal exposure during pregnancy [Unknown]
